FAERS Safety Report 24731975 (Version 2)
Quarter: 2025Q2

REPORT INFORMATION
  Report Type: Spontaneous
  Country: US (occurrence: US)
  Receive Date: 20241213
  Receipt Date: 20250404
  Transmission Date: 20250716
  Serious: No
  Sender: BAYER
  Company Number: US-BAYER-2024A176616

PATIENT
  Sex: Female

DRUGS (2)
  1. MIRENA [Suspect]
     Active Substance: LEVONORGESTREL
     Indication: Intrauterine contraception
     Dosage: 20?G/DAY
     Route: 015
     Dates: start: 201705
  2. VERZENIO [Concomitant]
     Active Substance: ABEMACICLIB

REACTIONS (2)
  - Fatigue [None]
  - Diarrhoea [Not Recovered/Not Resolved]
